FAERS Safety Report 7349488-7 (Version None)
Quarter: 2011Q1

REPORT INFORMATION
  Report Type: 
  Country: None (occurrence: None)
  Receive Date: 20110314
  Receipt Date: 20101118
  Transmission Date: 20110831
  Serious: No
  Sender: FDA-Public Use
  Company Number: A0893252A

PATIENT
  Age: 37 Year
  Sex: Female

DRUGS (2)
  1. AUGMENTIN XR [Suspect]
     Indication: INFECTION
     Dosage: 2TAB TWICE PER DAY
     Route: 048
     Dates: start: 20101110
  2. NO CONCURRENT MEDICATION [Concomitant]

REACTIONS (2)
  - DYSPEPSIA [None]
  - SENSATION OF FOREIGN BODY [None]
